FAERS Safety Report 7941197-6 (Version None)
Quarter: 2011Q4

REPORT INFORMATION
  Report Type: 
  Country: None (occurrence: None)
  Receive Date: 20111122
  Receipt Date: 20111122
  Transmission Date: 20120403
  Serious: Yes (Other)
  Sender: FDA-Public Use
  Company Number: None

PATIENT
  Sex: Female

DRUGS (4)
  1. VANCOMYCIN 5000MG VIAL HOSPIRA [Suspect]
     Indication: CELLULITIS
     Dosage: 1250MG Q12 HOURS IV
     Route: 042
     Dates: start: 20111010, end: 20111015
  2. CUBICIN [Suspect]
  3. CUBICIN [Suspect]
     Dosage: 500MG Q24 HOURS IV
     Route: 042
     Dates: start: 20111015, end: 20111015
  4. VANCOMYCIN [Suspect]

REACTIONS (2)
  - DRUG HYPERSENSITIVITY [None]
  - UNEVALUABLE EVENT [None]
